FAERS Safety Report 14045042 (Version 2)
Quarter: 2018Q1

REPORT INFORMATION
  Report Type: Report from Study
  Country: BR (occurrence: BR)
  Receive Date: 20171005
  Receipt Date: 20180315
  Transmission Date: 20180508
  Serious: Yes (Hospitalization)
  Sender: FDA-Public Use
  Company Number: BR-BIOGEN-2016BI00311391

PATIENT
  Age: 64 Year
  Sex: Female

DRUGS (3)
  1. SEPURIN (METHENAMINE) [Concomitant]
     Indication: URINARY TRACT DISORDER
     Route: 065
  2. TECFIDERA [Suspect]
     Active Substance: DIMETHYL FUMARATE
     Indication: MULTIPLE SCLEROSIS
     Dosage: AT BREAKFAST AND DINNER
     Route: 065
     Dates: start: 20161004
  3. OMEGA 3 [Concomitant]
     Active Substance: OMEGA-3 FATTY ACIDS
     Indication: CARDIOVASCULAR DISORDER
     Route: 065

REACTIONS (21)
  - Memory impairment [Recovered/Resolved]
  - Spinal disorder [Unknown]
  - Back pain [Recovered/Resolved]
  - Abdominal discomfort [Recovered/Resolved]
  - Drug dose omission [Unknown]
  - Spinal pain [Not Recovered/Not Resolved]
  - Flushing [Recovered/Resolved]
  - Balance disorder [Unknown]
  - Abdominal pain [Unknown]
  - Dysstasia [Unknown]
  - Headache [Recovered/Resolved]
  - Nervousness [Unknown]
  - Exostosis [Not Recovered/Not Resolved]
  - Hernia [Unknown]
  - Fear [Unknown]
  - Gait disturbance [Not Recovered/Not Resolved]
  - Tongue spasm [Recovered/Resolved]
  - Anxiety [Unknown]
  - Diarrhoea [Recovered/Resolved]
  - Musculoskeletal stiffness [Unknown]
  - Fall [Recovered/Resolved]

NARRATIVE: CASE EVENT DATE: 201802
